FAERS Safety Report 10599710 (Version 1)
Quarter: 2014Q4

REPORT INFORMATION
  Report Type: Spontaneous
  Country: US (occurrence: US)
  Receive Date: 20141121
  Receipt Date: 20141121
  Transmission Date: 20150529
  Serious: Yes (Death, Hospitalization)
  Sender: FDA-Public Use
  Company Number: PHHY2014US148048

PATIENT
  Age: 46 Year
  Sex: Female

DRUGS (1)
  1. MINOCYCLINE [Suspect]
     Active Substance: MINOCYCLINE\MINOCYCLINE HYDROCHLORIDE
     Indication: DERMATITIS
     Route: 065

REACTIONS (38)
  - Liver function test abnormal [Recovered/Resolved]
  - Exfoliative rash [Not Recovered/Not Resolved]
  - Hypersensitivity [Unknown]
  - Dermatitis exfoliative [Unknown]
  - Shock [Unknown]
  - Chest discomfort [Unknown]
  - Ventricular hypokinesia [Unknown]
  - Bundle branch block left [Unknown]
  - Drug reaction with eosinophilia and systemic symptoms [Unknown]
  - Leukocytosis [Unknown]
  - Dermatitis [Unknown]
  - Malaise [Unknown]
  - Cardiac failure [Unknown]
  - Sinus tachycardia [Unknown]
  - Blood creatinine increased [Unknown]
  - Multi-organ failure [Fatal]
  - Pericardial effusion [Unknown]
  - Blood creatine phosphokinase MB increased [Unknown]
  - Lymphadenopathy [Unknown]
  - Tubulointerstitial nephritis [Recovered/Resolved]
  - Pyrexia [Not Recovered/Not Resolved]
  - Dyspnoea [Unknown]
  - Brain natriuretic peptide increased [Unknown]
  - Blood creatine phosphokinase increased [Unknown]
  - Arthralgia [Unknown]
  - Rash erythematous [Not Recovered/Not Resolved]
  - Atrial fibrillation [Unknown]
  - Atrioventricular block first degree [Unknown]
  - Acute kidney injury [Recovered/Resolved]
  - Abdominal pain upper [Unknown]
  - Eosinophilic myocarditis [Fatal]
  - Myocarditis [Fatal]
  - Skin lesion [Unknown]
  - Neutrophilia [Unknown]
  - Eosinophilia [Not Recovered/Not Resolved]
  - Thrombocytosis [Unknown]
  - Tachycardia [Unknown]
  - Metabolic acidosis [Unknown]
